FAERS Safety Report 8055684-6 (Version None)
Quarter: 2012Q1

REPORT INFORMATION
  Report Type: 
  Country: None (occurrence: None)
  Receive Date: 20120119
  Receipt Date: 20120109
  Transmission Date: 20120608
  Serious: Yes (Hospitalization, Other)
  Sender: FDA-Public Use
  Company Number: ES-ELI_LILLY_AND_COMPANY-ES201201002502

PATIENT
  Sex: Female
  Weight: 50 kg

DRUGS (12)
  1. FENTANILO [Concomitant]
     Indication: ANALGESIC THERAPY
     Dosage: UNK
  2. LYRICA [Concomitant]
     Indication: ANALGESIC THERAPY
     Dosage: 1 DF, QD
  3. OMEPRAZOLE [Concomitant]
     Indication: GASTRIC DISORDER
     Dosage: Q1 DF, QD
  4. SINTROM [Concomitant]
     Indication: ARRHYTHMIA
  5. CALCIUM [Concomitant]
     Indication: OSTEOPOROSIS
     Dosage: UNK
     Route: 048
  6. FORTEO [Suspect]
     Indication: OSTEOPOROSIS
     Dosage: 20 UG, QD
     Route: 058
     Dates: start: 20111207
  7. TENORMIN [Concomitant]
  8. FUROSEMIDE [Concomitant]
     Indication: DIURETIC THERAPY
     Dosage: 1 DF, QD
  9. INSPRA [Concomitant]
  10. LORAZEPAM [Concomitant]
     Indication: INSOMNIA
     Dosage: 2 DF, QD
     Route: 048
  11. AMILORIDE HCL AND HYDROCHLOROTHIAZIDE [Concomitant]
  12. REPAGLINIDE [Concomitant]

REACTIONS (1)
  - HIP FRACTURE [None]
